FAERS Safety Report 4783066-9 (Version None)
Quarter: 2005Q3

REPORT INFORMATION
  Report Type: 
  Country: None (occurrence: None)
  Receive Date: 20050914
  Receipt Date: 20050311
  Transmission Date: 20060218
  Serious: Yes (Death, Hospitalization)
  Sender: FDA-Public Use
  Company Number: 167-20785-05030433

PATIENT
  Age: 70 Year
  Sex: Male

DRUGS (9)
  1. THALIDOMIDE - PHARMION (THALIDOMIDE) (50 MILLIGRAM, CAPSULES) [Suspect]
     Indication: NON-SMALL CELL LUNG CANCER
     Dosage: 100 MG, DAILY, ORAL
     Route: 048
     Dates: start: 20050127, end: 20050228
  2. GEMCITABINE (CEMCITABINE) (UNKNOWN) [Suspect]
     Indication: NON-SMALL CELL LUNG CANCER
     Dosage: 2350 MG, INTRAVENOUS
     Route: 042
     Dates: start: 20050210, end: 20050210
  3. CARBOPLATIN [Suspect]
     Indication: NON-SMALL CELL LUNG CANCER
     Dosage: 500 MG, INTRAVENOUS
     Route: 042
     Dates: start: 20050210, end: 20050210
  4. SIMVASTATIN [Concomitant]
  5. ENALAPRIL [Concomitant]
  6. AMLODIPINE [Concomitant]
  7. ATENOLOL [Concomitant]
  8. DEXAMETHASONE [Concomitant]
  9. OMEPRAZOLE [Concomitant]

REACTIONS (4)
  - DEATH [None]
  - DISEASE PROGRESSION [None]
  - PNEUMONIA [None]
  - PNEUMONIA STAPHYLOCOCCAL [None]
